FAERS Safety Report 9866235 (Version 2)
Quarter: 2014Q1

REPORT INFORMATION
  Report Type: Spontaneous
  Country: US (occurrence: US)
  Receive Date: 20140203
  Receipt Date: 20140203
  Transmission Date: 20141002
  Serious: No
  Sender: FDA-Public Use
  Company Number: US-ALLERGAN-1317104US

PATIENT
  Age: 59 Year
  Sex: Female

DRUGS (4)
  1. RESTASIS [Suspect]
     Indication: DRY EYE
     Dosage: 2 GTT, BID
     Route: 047
     Dates: start: 2012
  2. RESTASIS [Suspect]
     Dosage: 2 GTT, BID
     Route: 047
  3. BLINK                              /00582501/ [Concomitant]
     Indication: PRODUCT USED FOR UNKNOWN INDICATION
  4. REFRESH NOS [Concomitant]
     Indication: PRODUCT USED FOR UNKNOWN INDICATION

REACTIONS (4)
  - Visual acuity reduced [Not Recovered/Not Resolved]
  - Incorrect product storage [Unknown]
  - Eye swelling [Not Recovered/Not Resolved]
  - Drug ineffective [Unknown]
